FAERS Safety Report 7137183-9 (Version None)
Quarter: 2010Q4

REPORT INFORMATION
  Report Type: 
  Country: None (occurrence: None)
  Receive Date: 20101206
  Receipt Date: 20070315
  Transmission Date: 20110411
  Serious: Yes (Death)
  Sender: FDA-Public Use
  Company Number: US-ACTELION-A-US2007-14688

PATIENT

DRUGS (11)
  1. ILOPROST INHALATION SOLUTION 5UG US [Suspect]
     Indication: PULMONARY ARTERIAL HYPERTENSION
     Dosage: 5 UG, 6-9 X DAY
     Route: 055
     Dates: start: 20061004, end: 20070312
  2. TRACLEER [Concomitant]
     Indication: PULMONARY HYPERTENSION
     Route: 048
  3. ALBUTEROL [Concomitant]
  4. IPRATROPIUM BROMIDE [Concomitant]
  5. WARFARIN SODIUM [Concomitant]
  6. DUONEB [Concomitant]
  7. PRAVASTATIN [Concomitant]
  8. PREDNISONE [Concomitant]
  9. PREMARIN [Concomitant]
  10. PRILOSEC [Concomitant]
  11. ZYRTEC [Concomitant]

REACTIONS (1)
  - DEATH [None]
